FAERS Safety Report 10277935 (Version 7)
Quarter: 2015Q1

REPORT INFORMATION
  Report Type: Spontaneous
  Country: US (occurrence: US)
  Receive Date: 20140704
  Receipt Date: 20150306
  Transmission Date: 20150720
  Serious: Yes (Hospitalization, Other)
  Sender: FDA-Public Use
  Company Number: US-009507513-1406USA013446

PATIENT
  Sex: Female
  Weight: 61.68 kg

DRUGS (5)
  1. FOSAMAX PLUS D [Suspect]
     Active Substance: ALENDRONATE SODIUM\CHOLECALCIFEROL
     Dosage: 70 MG, UNK
     Route: 048
     Dates: start: 201002, end: 20110606
  2. FOSAMAX [Suspect]
     Active Substance: ALENDRONATE SODIUM
     Indication: OSTEOPOROSIS
     Dosage: UNK
     Route: 048
     Dates: start: 19970624
  3. FOSAMAX PLUS D [Suspect]
     Active Substance: ALENDRONATE SODIUM\CHOLECALCIFEROL
     Indication: OSTEOPENIA
     Dosage: 70 MG, UNK
     Route: 048
     Dates: start: 20071008, end: 200907
  4. ALENDRONATE SODIUM. [Suspect]
     Active Substance: ALENDRONATE SODIUM
     Indication: OSTEOPENIA
     Dosage: 70 MG, UNK
     Dates: start: 20090717, end: 20120403
  5. FOSAMAX [Suspect]
     Active Substance: ALENDRONATE SODIUM
     Indication: OSTEOPENIA
     Dosage: 70 MG, UNK
     Route: 048
     Dates: start: 20070529, end: 200710

REACTIONS (29)
  - Intramedullary rod insertion [Unknown]
  - Hysterectomy [Unknown]
  - Hypertension [Unknown]
  - Femur fracture [Unknown]
  - Ear infection [Unknown]
  - Intramedullary rod insertion [Unknown]
  - Pain [Unknown]
  - Intraocular lens implant [Unknown]
  - Bunion operation [Unknown]
  - Fall [Unknown]
  - Osteoarthritis [Unknown]
  - Uterine dilation and curettage [Unknown]
  - Intraocular lens implant [Unknown]
  - Femur fracture [Recovered/Resolved]
  - Back pain [Unknown]
  - Gastrooesophageal reflux disease [Unknown]
  - Salpingo-oophorectomy bilateral [Unknown]
  - Cataract operation [Unknown]
  - Fracture nonunion [Unknown]
  - Removal of internal fixation [Unknown]
  - Basal cell carcinoma [Unknown]
  - Tonsillectomy [Unknown]
  - Cough [Unknown]
  - Anaemia [Unknown]
  - Blood glucose increased [Unknown]
  - Nerve injury [Unknown]
  - Cataract operation [Unknown]
  - Arthritis [Not Recovered/Not Resolved]
  - Hyperlipidaemia [Unknown]

NARRATIVE: CASE EVENT DATE: 2004
